FAERS Safety Report 25102240 (Version 1)
Quarter: 2025Q1

REPORT INFORMATION
  Report Type: Other
  Country: US (occurrence: US)
  Receive Date: 20250320
  Receipt Date: 20250320
  Transmission Date: 20250408
  Serious: Yes (Life-Threatening, Hospitalization)
  Sender: MERCK KGAA
  Company Number: US-Merck Healthcare KGaA-2025012870

PATIENT
  Age: 67 Year
  Sex: Female

DRUGS (9)
  1. LEVOTHYROXINE [Suspect]
     Active Substance: LEVOTHYROXINE
     Indication: Suicidal ideation
  2. METOPROLOL [Suspect]
     Active Substance: METOPROLOL
     Indication: Suicidal ideation
  3. AMLODIPINE [Suspect]
     Active Substance: AMLODIPINE BESYLATE
     Indication: Suicidal ideation
  4. MIRTAZAPINE [Suspect]
     Active Substance: MIRTAZAPINE
     Indication: Suicidal ideation
  5. PANTOPRAZOLE [Suspect]
     Active Substance: PANTOPRAZOLE
     Indication: Suicidal ideation
  6. QUETIAPINE [Suspect]
     Active Substance: QUETIAPINE
     Indication: Suicidal ideation
  7. QUETIAPINE [Suspect]
     Active Substance: QUETIAPINE
  8. LEVETIRACETAM [Suspect]
     Active Substance: LEVETIRACETAM
     Indication: Suicidal ideation
  9. MELATONIN [Suspect]
     Active Substance: MELATONIN
     Indication: Suicidal ideation

REACTIONS (7)
  - Hypotension [Recovered/Resolved]
  - Suicide attempt [Unknown]
  - Metabolic acidosis [Recovered/Resolved]
  - Respiratory failure [Recovered/Resolved]
  - Haemodynamic instability [Recovered/Resolved]
  - Hypervolaemia [Recovered/Resolved]
  - Toxicity to various agents [Unknown]
